FAERS Safety Report 11271342 (Version 2)
Quarter: 2015Q3

REPORT INFORMATION
  Report Type: Report from Study
  Country: DE (occurrence: CO)
  Receive Date: 20150714
  Receipt Date: 20150903
  Transmission Date: 20151125
  Serious: Yes (Disabling, Other)
  Sender: FDA-Public Use
  Company Number: DE-ACTELION-A-NJ2015-120856

PATIENT
  Age: 24 Year
  Sex: Male

DRUGS (7)
  1. VENTAVIS [Suspect]
     Active Substance: ILOPROST
     Indication: PULMONARY HYPERTENSION
     Dosage: UNK, QID
     Route: 055
     Dates: start: 20121210
  2. FLUOXETINE [Concomitant]
     Active Substance: FLUOXETINE\FLUOXETINE HYDROCHLORIDE
  3. DILTIAZEM [Concomitant]
     Active Substance: DILTIAZEM
     Dosage: UNK
  4. FUROSEMIDE. [Concomitant]
     Active Substance: FUROSEMIDE
     Dosage: UNK
  5. VENTAVIS [Suspect]
     Active Substance: ILOPROST
     Dosage: 2-3 NEBULIZATIONS DAILY
     Route: 055
     Dates: start: 20141230, end: 2015
  6. SPIRONOLACTONE. [Concomitant]
     Active Substance: SPIRONOLACTONE
     Dosage: UNK
  7. OLANZAPINE. [Concomitant]
     Active Substance: OLANZAPINE
     Dosage: UNK
     Dates: start: 201404

REACTIONS (10)
  - Peripheral swelling [Not Recovered/Not Resolved]
  - Anxiety [Unknown]
  - Pharyngitis [Unknown]
  - Cough [Unknown]
  - Inflammation [Unknown]
  - Throat irritation [Unknown]
  - Alopecia [Unknown]
  - Product use issue [Recovered/Resolved]
  - Peripheral vascular disorder [Unknown]
  - Abasia [Not Recovered/Not Resolved]

NARRATIVE: CASE EVENT DATE: 201312
